FAERS Safety Report 16641068 (Version 1)
Quarter: 2019Q3

REPORT INFORMATION
  Report Type: Spontaneous
  Country: US (occurrence: US)
  Receive Date: 20190729
  Receipt Date: 20190729
  Transmission Date: 20191004
  Serious: Yes (Other)
  Sender: FDA-Public Use
  Company Number: US-ZYDUS-039123

PATIENT
  Age: 32 Year
  Sex: Female

DRUGS (6)
  1. METHYLPREDNISOLONE. [Suspect]
     Active Substance: METHYLPREDNISOLONE
     Indication: CHEMOTHERAPY
     Route: 065
  2. DAUNORUBICIN [Suspect]
     Active Substance: DAUNORUBICIN
     Indication: CHEMOTHERAPY
     Dosage: DAUNORUBICIN 25 MG/M2 ON DAYS 1, 8, 15, AND 22
     Route: 065
  3. VINCRISTINE [Suspect]
     Active Substance: VINCRISTINE
     Indication: CHEMOTHERAPY
     Dosage: VINCRISTINE 2 MG ON DAYS 1, 8, 15, AND 22
     Route: 065
  4. PREDNISONE. [Suspect]
     Active Substance: PREDNISONE
     Indication: CHEMOTHERAPY
     Dosage: PREDNISONE 2 MG/KG DAILY ON DAYS 1-28
     Route: 065
  5. CYTARABINE. [Concomitant]
     Active Substance: CYTARABINE
     Indication: CHEMOTHERAPY
     Dosage: HIGH DOSE CYTARABINE 3 GM/M2
     Route: 065
  6. METHOTREXATE. [Suspect]
     Active Substance: METHOTREXATE
     Indication: CHEMOTHERAPY
     Dosage: HIGH-DOSE METHOTREXATE 1 GM/M2
     Route: 065

REACTIONS (2)
  - Pyrexia [Not Recovered/Not Resolved]
  - Acute myeloid leukaemia [Not Recovered/Not Resolved]
